FAERS Safety Report 4739065-6 (Version None)
Quarter: 2005Q3

REPORT INFORMATION
  Report Type: 
  Country: None (occurrence: None)
  Receive Date: 20050810
  Receipt Date: 20050322
  Transmission Date: 20060218
  Serious: No
  Sender: FDA-Public Use
  Company Number: US-GLAXOSMITHKLINE-A0550833A

PATIENT
  Age: 8 Year
  Sex: Female

DRUGS (2)
  1. PAXIL [Suspect]
     Dosage: 10MG PER DAY
     Route: 048
     Dates: start: 20041001
  2. NO CONCURRENT MEDICATION [Concomitant]

REACTIONS (2)
  - ANXIETY [None]
  - PHARMACEUTICAL PRODUCT COMPLAINT [None]
